FAERS Safety Report 12521786 (Version 1)
Quarter: 2016Q3

REPORT INFORMATION
  Report Type: Spontaneous
  Country: US (occurrence: US)
  Receive Date: 20160701
  Receipt Date: 20160701
  Transmission Date: 20161109
  Serious: No
  Sender: FDA-Public Use
  Company Number: US-ELI_LILLY_AND_COMPANY-US201606010364

PATIENT
  Sex: Female

DRUGS (10)
  1. HUMALOG [Suspect]
     Active Substance: INSULIN LISPRO
     Dosage: 10 U, AT LUNCH
     Route: 065
     Dates: start: 2012
  2. HUMALOG [Suspect]
     Active Substance: INSULIN LISPRO
     Dosage: 12 U, EACH EVENING
     Route: 065
  3. HUMALOG [Suspect]
     Active Substance: INSULIN LISPRO
     Indication: TYPE 1 DIABETES MELLITUS
     Dosage: 7 U, EACH MORNING
     Route: 065
     Dates: start: 2012
  4. HUMALOG [Suspect]
     Active Substance: INSULIN LISPRO
     Dosage: 7 U, EACH MORNING
     Route: 065
  5. HUMALOG [Suspect]
     Active Substance: INSULIN LISPRO
     Dosage: 12 U, EACH EVENING
     Route: 065
     Dates: start: 2012
  6. HUMALOG [Suspect]
     Active Substance: INSULIN LISPRO
     Dosage: 10 U, AT LUNCH
     Route: 065
     Dates: start: 2012
  7. HUMALOG [Suspect]
     Active Substance: INSULIN LISPRO
     Dosage: 12 U, EACH EVENING
     Route: 065
  8. LANTUS [Concomitant]
     Active Substance: INSULIN GLARGINE
  9. HUMALOG [Suspect]
     Active Substance: INSULIN LISPRO
     Dosage: 7 U, EACH MORNING
     Route: 065
  10. HUMALOG [Suspect]
     Active Substance: INSULIN LISPRO
     Dosage: 10 U, AT LUNCH
     Route: 065

REACTIONS (1)
  - Incorrect dose administered [Unknown]
